FAERS Safety Report 8799413 (Version 3)
Quarter: 2013Q1

REPORT INFORMATION
  Report Type: Spontaneous
  Country: US (occurrence: US)
  Receive Date: 20120919
  Receipt Date: 20130228
  Transmission Date: 20140127
  Serious: Yes (Hospitalization, Other)
  Sender: FDA-Public Use
  Company Number: US-GENZYME-CAMP-1002377

PATIENT
  Age: 30 Year
  Sex: Female
  Weight: 56.24 kg

DRUGS (5)
  1. CAMPATH [Suspect]
     Indication: MULTIPLE SCLEROSIS
     Dosage: 12 MG, QD, FOR 5 DAYS
     Route: 042
     Dates: start: 200709
  2. CAMPATH [Suspect]
     Dosage: 24 MG, QD, FOR 3 DAYS
     Route: 042
     Dates: start: 200809
  3. CAMPATH [Suspect]
     Dosage: 12 MG, QD, FOR 3 DAYS
     Route: 065
     Dates: start: 2010
  4. IMMUNOGLOBULINS [Concomitant]
     Indication: PRODUCT USED FOR UNKNOWN INDICATION
     Dosage: UNK
     Route: 042
  5. TRIVORA [Concomitant]
     Indication: CONTRACEPTION
     Dosage: UNK
     Route: 065

REACTIONS (9)
  - Hypertension [Unknown]
  - Goodpasture^s syndrome [Unknown]
  - Renal failure acute [Unknown]
  - Pneumonia [Unknown]
  - Escherichia urinary tract infection [Unknown]
  - Off label use [Unknown]
  - Serum ferritin increased [Unknown]
  - Multiple sclerosis relapse [Unknown]
  - Anaemia [Unknown]
